FAERS Safety Report 6372134-6 (Version None)
Quarter: 2009Q3

REPORT INFORMATION
  Report Type: 
  Country: None (occurrence: None)
  Receive Date: 20090917
  Receipt Date: 20090904
  Transmission Date: 20100115
  Serious: Yes (Hospitalization)
  Sender: FDA-Public Use
  Company Number: ADR16252009

PATIENT
  Age: 59 Year
  Sex: Female

DRUGS (5)
  1. CITALOPRAM HYDROBROMIDE [Suspect]
     Dosage: 10 TO 20 MG
     Route: 048
     Dates: start: 20090415
  2. ADCAL-D3 [Concomitant]
  3. CHLORDIAZEPOXIDE [Concomitant]
  4. RISEDRONATE SODIUM [Concomitant]
  5. TAMOXIFEN CITRATE [Concomitant]

REACTIONS (5)
  - ALCOHOL USE [None]
  - FALL [None]
  - GRAND MAL CONVULSION [None]
  - HIP FRACTURE [None]
  - HYPONATRAEMIA [None]
